FAERS Safety Report 8477037-9 (Version None)
Quarter: 2012Q2

REPORT INFORMATION
  Report Type: 
  Country: None (occurrence: None)
  Receive Date: 20120629
  Receipt Date: 20120619
  Transmission Date: 20120825
  Serious: Yes (Death, Other)
  Sender: FDA-Public Use
  Company Number: GB-BAYER-2012-060441

PATIENT
  Age: 47 Year
  Sex: Male

DRUGS (2)
  1. GAVISCON [Suspect]
     Indication: DYSPEPSIA
     Dosage: UNK
     Dates: start: 20110702
  2. ASPIRIN [Suspect]
     Dosage: UNK

REACTIONS (5)
  - HYPERHIDROSIS [None]
  - CARDIAC ARREST [None]
  - MYOCARDIAL INFARCTION [None]
  - PALLOR [None]
  - CHEST PAIN [None]
